FAERS Safety Report 25823684 (Version 1)
Quarter: 2025Q3

REPORT INFORMATION
  Report Type: Spontaneous
  Country: IN (occurrence: IN)
  Receive Date: 20250919
  Receipt Date: 20250919
  Transmission Date: 20251020
  Serious: Yes (Hospitalization)
  Sender: ASTELLAS
  Company Number: IN-ASTELLAS-2025-AER-051240

PATIENT
  Age: 52 Year
  Sex: Male

DRUGS (11)
  1. TACROLIMUS [Interacting]
     Active Substance: TACROLIMUS
     Indication: Renal transplant
     Route: 065
     Dates: start: 2009, end: 20250506
  2. TACROLIMUS [Interacting]
     Active Substance: TACROLIMUS
     Dosage: REDUCED
     Route: 065
     Dates: start: 20250506, end: 20250520
  3. TACROLIMUS [Interacting]
     Active Substance: TACROLIMUS
     Dosage: 10 DAYS AFTER ADMISSION
     Route: 065
     Dates: start: 20250529
  4. FLUCONAZOLE [Interacting]
     Active Substance: FLUCONAZOLE
     Indication: Oral candidiasis
     Dosage: FOR 14 DAYS
     Route: 065
     Dates: start: 20250506
  5. RITONAVIR [Interacting]
     Active Substance: RITONAVIR
     Indication: Acquired immunodeficiency syndrome
     Route: 065
     Dates: start: 20250421
  6. MYCOPHENOLIC ACID [Concomitant]
     Active Substance: MYCOPHENOLIC ACID
     Indication: Renal transplant
     Route: 065
     Dates: start: 2009
  7. PREDNISOLONE [Concomitant]
     Active Substance: PREDNISOLONE
     Indication: Renal transplant
     Route: 065
     Dates: start: 2009
  8. LAMIVUDINE [Concomitant]
     Active Substance: LAMIVUDINE
     Indication: Acquired immunodeficiency syndrome
     Route: 065
  9. ABACAVIR [Concomitant]
     Active Substance: ABACAVIR
     Indication: Acquired immunodeficiency syndrome
     Route: 065
  10. DOLUTEGRAVIR [Concomitant]
     Active Substance: DOLUTEGRAVIR
     Indication: Acquired immunodeficiency syndrome
     Route: 065
  11. ATAZANAVIR [Concomitant]
     Active Substance: ATAZANAVIR
     Indication: Acquired immunodeficiency syndrome
     Route: 065
     Dates: start: 20250421

REACTIONS (7)
  - Hyperglycaemia [Unknown]
  - Electrolyte imbalance [Unknown]
  - Blood creatinine increased [Recovered/Resolved]
  - Toxicity to various agents [Recovered/Resolved]
  - Oral candidiasis [Unknown]
  - Drug interaction [Unknown]
  - Drug interaction [Unknown]

NARRATIVE: CASE EVENT DATE: 20250101
